FAERS Safety Report 6823297-7 (Version None)
Quarter: 2010Q3

REPORT INFORMATION
  Report Type: 
  Country: None (occurrence: None)
  Receive Date: 20100708
  Receipt Date: 20100629
  Transmission Date: 20110219
  Serious: Yes (Hospitalization)
  Sender: FDA-Public Use
  Company Number: FR-AMGEN-QUU422202

PATIENT
  Sex: Male

DRUGS (6)
  1. ENBREL [Suspect]
     Indication: PSORIASIS
     Route: 058
     Dates: start: 20060101, end: 20060601
  2. ENBREL [Suspect]
     Indication: PSORIATIC ARTHROPATHY
  3. HUMIRA [Suspect]
     Indication: PSORIASIS
     Route: 042
     Dates: start: 20051001, end: 20051201
  4. HUMIRA [Suspect]
     Indication: PSORIATIC ARTHROPATHY
  5. REMICADE [Suspect]
     Indication: PSORIASIS
     Dosage: 5 INJECTIONS BETWEEN 09-MAR-2007 AND 10-AUG-2007
     Route: 042
     Dates: start: 20070309, end: 20070810
  6. REMICADE [Suspect]
     Indication: PSORIATIC ARTHROPATHY

REACTIONS (3)
  - CONDITION AGGRAVATED [None]
  - CUTANEOUS SARCOIDOSIS [None]
  - PSORIASIS [None]
